FAERS Safety Report 18097282 (Version 1)
Quarter: 2020Q3

REPORT INFORMATION
  Report Type: Spontaneous
  Country: US (occurrence: US)
  Receive Date: 20200730
  Receipt Date: 20200730
  Transmission Date: 20201103
  Serious: Yes (Death)
  Sender: FDA-Public Use
  Company Number: None

PATIENT
  Age: 29 Year
  Sex: Female
  Weight: 58.5 kg

DRUGS (2)
  1. LETAIRIS [Suspect]
     Active Substance: AMBRISENTAN
     Indication: PULMONARY ARTERIAL HYPERTENSION
     Route: 048
     Dates: start: 20160317, end: 20200727
  2. ADCIRCA [Concomitant]
     Active Substance: TADALAFIL
     Dates: start: 20160316, end: 20200727

REACTIONS (1)
  - Death [None]

NARRATIVE: CASE EVENT DATE: 20200727
